FAERS Safety Report 7558214-8 (Version None)
Quarter: 2011Q2

REPORT INFORMATION
  Report Type: 
  Country: None (occurrence: None)
  Receive Date: 20110620
  Receipt Date: 20110615
  Transmission Date: 20111010
  Serious: Yes (Life-Threatening)
  Sender: FDA-Public Use
  Company Number: GB-ELI_LILLY_AND_COMPANY-GB201106004170

PATIENT
  Age: 52 Year
  Sex: Female
  Weight: 107 kg

DRUGS (6)
  1. ASPIRIN [Concomitant]
  2. METFORMIN HCL [Concomitant]
  3. SIMVASTATIN [Concomitant]
  4. BYETTA [Suspect]
     Indication: DIABETES MELLITUS
     Dosage: 10 UG, BID
     Route: 058
     Dates: start: 20100506
  5. CHOLECALCIFEROL [Concomitant]
  6. GLICLAZIDE [Concomitant]

REACTIONS (1)
  - MALIGNANT PERITONEAL NEOPLASM [None]
